FAERS Safety Report 24437257 (Version 1)
Quarter: 2024Q4

REPORT INFORMATION
  Report Type: Spontaneous
  Country: US (occurrence: None)
  Receive Date: 20241011
  Receipt Date: 20241011
  Transmission Date: 20250115
  Serious: No
  Sender: Public
  Company Number: None

PATIENT
  Age: 58 Year
  Sex: Female
  Weight: 103 kg

DRUGS (1)
  1. LECANEMAB-IRMB [Suspect]
     Active Substance: LECANEMAB-IRMB
     Indication: Dementia Alzheimer^s type
     Dosage: OTHER FREQUENCY : ONCE;?
     Route: 042
     Dates: start: 20240426

REACTIONS (4)
  - Headache [None]
  - Infusion related reaction [None]
  - Magnetic resonance imaging head abnormal [None]
  - Amyloid related imaging abnormalities [None]

NARRATIVE: CASE EVENT DATE: 20240705
